FAERS Safety Report 5033397-2 (Version None)
Quarter: 2006Q2

REPORT INFORMATION
  Report Type: 
  Country: None (occurrence: None)
  Receive Date: 20060512
  Receipt Date: 20060406
  Transmission Date: 20061013
  Serious: No
  Sender: FDA-Public Use
  Company Number: SUS1-2006-00370

PATIENT
  Age: 84 Year
  Sex: Female
  Weight: 49 kg

DRUGS (4)
  1. FOSRENOL [Suspect]
     Indication: HYPERPHOSPHATAEMIA
     Dosage: 1000 MG,3X/DAY:TID
  2. ATENOLOL [Concomitant]
  3. CARDURA /00639302/(DOXAZOSIN MESILATE) [Concomitant]
  4. LIPITOR [Concomitant]

REACTIONS (1)
  - GRAFT THROMBOSIS [None]
